FAERS Safety Report 20264712 (Version 1)
Quarter: 2021Q4

REPORT INFORMATION
  Report Type: Spontaneous
  Country: CN (occurrence: None)
  Receive Date: 20211231
  Receipt Date: 20211231
  Transmission Date: 20220303
  Serious: Yes (Hospitalization)
  Sender: FDA-Public Use
  Company Number: 2021A904795

PATIENT
  Age: 24821 Day
  Sex: Male
  Weight: 51 kg

DRUGS (1)
  1. OSIMERTINIB MESYLATE [Suspect]
     Active Substance: OSIMERTINIB MESYLATE
     Indication: Chemotherapy
     Route: 048
     Dates: start: 20211018, end: 20211217

REACTIONS (6)
  - Immune-mediated lung disease [Recovering/Resolving]
  - Cough [Recovering/Resolving]
  - Productive cough [Unknown]
  - Chest discomfort [Recovering/Resolving]
  - Dyspnoea [Unknown]
  - Lung opacity [Unknown]

NARRATIVE: CASE EVENT DATE: 20211201
